FAERS Safety Report 22627410 (Version 3)
Quarter: 2024Q1

REPORT INFORMATION
  Report Type: Report from Study
  Country: US (occurrence: US)
  Receive Date: 20230622
  Receipt Date: 20240201
  Transmission Date: 20240409
  Serious: Yes (Other)
  Sender: FDA-Public Use
  Company Number: US-ASCENDIS PHARMA-2023US002425

PATIENT

DRUGS (6)
  1. LONAPEGSOMATROPIN [Suspect]
     Active Substance: LONAPEGSOMATROPIN
     Indication: Hypopituitarism
     Dosage: 11 MILLIGRAM, WEEKLY
     Route: 058
     Dates: start: 202301, end: 202304
  2. LONAPEGSOMATROPIN [Suspect]
     Active Substance: LONAPEGSOMATROPIN
     Dosage: 9.1 MILLIGRAM, WEEKLY
     Route: 058
     Dates: start: 202304, end: 202308
  3. LONAPEGSOMATROPIN [Suspect]
     Active Substance: LONAPEGSOMATROPIN
     Dosage: 7.6 MILLIGRAM, EVERY OTHER WEEK
     Route: 058
     Dates: start: 202308
  4. LONAPEGSOMATROPIN [Suspect]
     Active Substance: LONAPEGSOMATROPIN
     Dosage: UNK
     Route: 058
     Dates: end: 202310
  5. MOTRIN IB [Concomitant]
     Active Substance: IBUPROFEN
     Indication: Product used for unknown indication
     Dosage: 200 MILLIGRAM
  6. VITAMIN D NOS [Concomitant]
     Active Substance: VITAMIN D NOS
     Indication: Product used for unknown indication
     Dosage: 10 MICROGRAM

REACTIONS (9)
  - Syncope [Recovered/Resolved]
  - Dizziness [Recovered/Resolved]
  - Muscular weakness [Recovered/Resolved]
  - Headache [Recovered/Resolved]
  - Arthralgia [Recovered/Resolved]
  - Musculoskeletal stiffness [Recovered/Resolved]
  - Abdominal pain upper [Recovered/Resolved]
  - Muscle twitching [Recovered/Resolved]
  - Cortisol decreased [Recovered/Resolved]

NARRATIVE: CASE EVENT DATE: 20230101
